FAERS Safety Report 23330196 (Version 2)
Quarter: 2025Q3

REPORT INFORMATION
  Report Type: Spontaneous
  Country: US (occurrence: US)
  Receive Date: 20231222
  Receipt Date: 20250707
  Transmission Date: 20251021
  Serious: No
  Sender: SANOFI AVENTIS
  Company Number: US-SA-SAC20231219001175

PATIENT
  Age: 44 Year
  Sex: Female
  Weight: 83.9 kg

DRUGS (12)
  1. DUPIXENT [Suspect]
     Active Substance: DUPILUMAB
     Indication: Asthma
     Dosage: 300 MG, QOW
     Route: 058
  2. DIAZEPAM [Concomitant]
     Active Substance: DIAZEPAM
  3. PREDNISONE [Concomitant]
     Active Substance: PREDNISONE
  4. LOSARTAN POTASSIUM [Concomitant]
     Active Substance: LOSARTAN POTASSIUM
  5. ALBUTEROL SULFATE [Concomitant]
     Active Substance: ALBUTEROL SULFATE
  6. GABAPENTIN [Concomitant]
     Active Substance: GABAPENTIN
  7. TRELEGY ELLIPTA [Concomitant]
     Active Substance: FLUTICASONE FUROATE\UMECLIDINIUM BROMIDE\VILANTEROL TRIFENATATE
  8. NYSTATIN [Concomitant]
     Active Substance: NYSTATIN
  9. ADAPALENE [Concomitant]
     Active Substance: ADAPALENE
  10. MONTELUKAST SODIUM [Concomitant]
     Active Substance: MONTELUKAST SODIUM
  11. ALPRAZOLAM [Concomitant]
     Active Substance: ALPRAZOLAM
  12. BUPROPION [Concomitant]
     Active Substance: BUPROPION

REACTIONS (1)
  - Nasopharyngitis [Unknown]

NARRATIVE: CASE EVENT DATE: 20231201
